FAERS Safety Report 9499397 (Version 2)
Quarter: 2013Q3

REPORT INFORMATION
  Report Type: Spontaneous
  Country: PL (occurrence: PL)
  Receive Date: 20130905
  Receipt Date: 20130913
  Transmission Date: 20140515
  Serious: Yes (Death, Other)
  Sender: FDA-Public Use
  Company Number: PL-AMGEN-POLSP2013061966

PATIENT
  Age: 57 Year
  Sex: 0

DRUGS (5)
  1. NEULASTA [Suspect]
     Indication: PROPHYLAXIS
     Dosage: 6 MG, ONLY ONE DOSE WAS ADMINISTERED
     Route: 058
  2. DOCETAXEL [Concomitant]
     Indication: THROAT CANCER
     Dosage: UNK
  3. CISPLATIN [Concomitant]
     Indication: THROAT CANCER
     Dosage: UNK
  4. 5 FLUOROURACIL                     /00098801/ [Concomitant]
     Indication: THROAT CANCER
     Dosage: UNK
  5. CYTOXAN [Concomitant]
     Indication: THROAT CANCER
     Dosage: UNK

REACTIONS (2)
  - Sepsis [Fatal]
  - Febrile neutropenia [Unknown]
